FAERS Safety Report 22329391 (Version 1)
Quarter: 2023Q2

REPORT INFORMATION
  Report Type: Spontaneous
  Country: US (occurrence: US)
  Receive Date: 20230517
  Receipt Date: 20230517
  Transmission Date: 20230722
  Serious: Yes (Hospitalization)
  Sender: FDA-Public Use
  Company Number: US-JNJFOC-20230516438

PATIENT
  Age: 33 Year
  Sex: Male

DRUGS (6)
  1. INVEGA SUSTENNA [Suspect]
     Active Substance: PALIPERIDONE PALMITATE
     Indication: Schizophrenia
     Route: 030
     Dates: start: 202101
  2. INVEGA SUSTENNA [Suspect]
     Active Substance: PALIPERIDONE PALMITATE
  3. INVEGA SUSTENNA [Suspect]
     Active Substance: PALIPERIDONE PALMITATE
  4. THORAZINE [Concomitant]
     Active Substance: CHLORPROMAZINE
     Dosage: 100MG 3 TIMES/D
  5. DEPAKOTE ER [Concomitant]
     Active Substance: DIVALPROEX SODIUM
     Dosage: 500MG ORALLY EVERY MORNING
  6. TRAZODONE [Concomitant]
     Active Substance: TRAZODONE HYDROCHLORIDE
     Dosage: 50MG ORALLY AT NIGHT

REACTIONS (3)
  - Pancreatitis acute [Recovering/Resolving]
  - Hypertriglyceridaemia [Recovering/Resolving]
  - Diabetic ketoacidosis [Recovering/Resolving]
